FAERS Safety Report 8192112-4 (Version None)
Quarter: 2012Q1

REPORT INFORMATION
  Report Type: 
  Country: None (occurrence: None)
  Receive Date: 20120307
  Receipt Date: 20120301
  Transmission Date: 20120608
  Serious: Yes (Hospitalization, Other)
  Sender: FDA-Public Use
  Company Number: US-PFIZER INC-2012055952

PATIENT
  Sex: Female
  Weight: 70.295 kg

DRUGS (4)
  1. LYRICA [Suspect]
     Indication: FIBROMYALGIA
  2. NEURONTIN [Suspect]
     Indication: NEUROPATHY PERIPHERAL
     Dosage: 1600 MG, DAILY
  3. CELEBREX [Concomitant]
     Indication: NEUROPATHY PERIPHERAL
     Dosage: 200 MG, 2X/DAY
  4. LYRICA [Suspect]
     Indication: NEUROPATHY PERIPHERAL
     Dosage: 150 MG, 2X/DAY

REACTIONS (2)
  - HIP FRACTURE [None]
  - HIP ARTHROPLASTY [None]
